FAERS Safety Report 10755536 (Version 2)
Quarter: 2015Q2

REPORT INFORMATION
  Report Type: Spontaneous
  Country: IT (occurrence: IT)
  Receive Date: 20150202
  Receipt Date: 20150427
  Transmission Date: 20150821
  Serious: Yes (Hospitalization)
  Sender: FDA-Public Use
  Company Number: IT-SA-2015SA008751

PATIENT
  Age: 80 Year
  Sex: Male

DRUGS (7)
  1. ZAROXOLYN [Suspect]
     Active Substance: METOLAZONE
     Dosage: STRENGTH: 5 MG
     Route: 048
     Dates: start: 20150108, end: 20150120
  2. LASIX [Suspect]
     Active Substance: FUROSEMIDE
     Route: 048
     Dates: start: 20150104, end: 20150120
  3. APIDRA [Concomitant]
     Active Substance: INSULIN GLULISINE
     Indication: DIABETES MELLITUS
  4. ROCALTROL [Concomitant]
     Active Substance: CALCITRIOL
  5. SINVACOR [Concomitant]
     Active Substance: SIMVASTATIN
  6. ARANESP [Concomitant]
     Active Substance: DARBEPOETIN ALFA
  7. TAREG [Concomitant]
     Active Substance: VALSARTAN

REACTIONS (2)
  - Hyponatraemia [Recovering/Resolving]
  - Asthenia [Recovering/Resolving]

NARRATIVE: CASE EVENT DATE: 20150120
